FAERS Safety Report 4847475-1 (Version None)
Quarter: 2005Q4

REPORT INFORMATION
  Report Type: 
  Country: None (occurrence: None)
  Receive Date: 20051205
  Receipt Date: 20051121
  Transmission Date: 20060501
  Serious: Yes (Life-Threatening)
  Sender: FDA-Public Use
  Company Number: 133355

PATIENT
  Age: 66 Year
  Sex: Female

DRUGS (1)
  1. TIMOLOL MALEATE [Suspect]

REACTIONS (1)
  - ATRIOVENTRICULAR BLOCK COMPLETE [None]
